FAERS Safety Report 11464856 (Version 1)
Quarter: 2015Q3

REPORT INFORMATION
  Report Type: Spontaneous
  Country: US (occurrence: US)
  Receive Date: 20150906
  Receipt Date: 20150906
  Transmission Date: 20151125
  Serious: No
  Sender: FDA-Public Use
  Company Number: PHEH2015US016729

PATIENT
  Sex: Female
  Weight: 122 kg

DRUGS (1)
  1. VOLTAREN XR [Suspect]
     Active Substance: DICLOFENAC SODIUM
     Indication: ARTHRITIS
     Dosage: 1 DF, QD
     Route: 048
     Dates: end: 201407

REACTIONS (2)
  - Drug ineffective [Unknown]
  - Body mass index abnormal [Unknown]
